FAERS Safety Report 7443191-0 (Version None)
Quarter: 2011Q2

REPORT INFORMATION
  Report Type: 
  Country: None (occurrence: None)
  Receive Date: 20110428
  Receipt Date: 20110421
  Transmission Date: 20111010
  Serious: Yes (Hospitalization)
  Sender: FDA-Public Use
  Company Number: B0683946A

PATIENT
  Age: 62 Year
  Sex: Male
  Weight: 123 kg

DRUGS (5)
  1. DIAMICRON [Concomitant]
  2. AVANDAMET [Suspect]
     Indication: DIABETES MELLITUS
     Route: 065
     Dates: start: 20060701, end: 20101010
  3. METFORMIN [Concomitant]
  4. TEGRETOL [Concomitant]
  5. GLICLAZIDE [Concomitant]

REACTIONS (8)
  - POLYNEUROPATHY [None]
  - PAIN [None]
  - MUSCLE SPASMS [None]
  - INTERVERTEBRAL DISC DISORDER [None]
  - ILL-DEFINED DISORDER [None]
  - GAIT DISTURBANCE [None]
  - HYPOAESTHESIA [None]
  - LUMBAR SPINAL STENOSIS [None]
